FAERS Safety Report 12640093 (Version 1)
Quarter: 2016Q3

REPORT INFORMATION
  Report Type: Spontaneous
  Country: US (occurrence: None)
  Receive Date: 20160809
  Receipt Date: 20160809
  Transmission Date: 20161109
  Serious: No
  Sender: FDA-Public Use
  Company Number: None

PATIENT
  Age: 15 Year
  Sex: Male
  Weight: 72 kg

DRUGS (1)
  1. STRENSIQ [Suspect]
     Active Substance: ASFOTASE ALFA
     Indication: HYPOPHOSPHATASIA
     Dosage: 68 MG 6 DAYS/WEEK SUBCUTANEOUS
     Route: 058
     Dates: start: 20160105, end: 20160807

REACTIONS (6)
  - Dyspnoea [None]
  - White blood cell count increased [None]
  - Feeling hot [None]
  - Hypoaesthesia [None]
  - Pyrexia [None]
  - Tremor [None]

NARRATIVE: CASE EVENT DATE: 20160804
